FAERS Safety Report 12487512 (Version 2)
Quarter: 2016Q3

REPORT INFORMATION
  Report Type: Spontaneous
  Country: MX (occurrence: MX)
  Receive Date: 20160622
  Receipt Date: 20160831
  Transmission Date: 20161109
  Serious: Yes (Death, Other)
  Sender: FDA-Public Use
  Company Number: MX-SHIRE-MX201607212

PATIENT
  Age: 7 Year
  Sex: Male

DRUGS (1)
  1. ELAPRASE [Suspect]
     Active Substance: IDURSULFASE
     Indication: MUCOPOLYSACCHARIDOSIS II
     Dosage: UNK UNK, UNKNOWN
     Route: 041
     Dates: start: 2008

REACTIONS (13)
  - Gastrointestinal haemorrhage [Fatal]
  - Haemolysis [Unknown]
  - Pyrexia [Unknown]
  - Respiratory distress [Unknown]
  - Urticaria [Unknown]
  - Respiratory tract infection [Fatal]
  - Immune thrombocytopenic purpura [Unknown]
  - Gingival bleeding [Unknown]
  - Erythema [Unknown]
  - Angioedema [Unknown]
  - Laryngeal oedema [Unknown]
  - Wheezing [Unknown]
  - Infusion related reaction [Unknown]
